FAERS Safety Report 4987109-9 (Version None)
Quarter: 2006Q2

REPORT INFORMATION
  Report Type: 
  Country: None (occurrence: None)
  Receive Date: 20060501
  Receipt Date: 20060420
  Transmission Date: 20061013
  Serious: Yes (Hospitalization)
  Sender: FDA-Public Use
  Company Number: US-JNJFOC-20060405235

PATIENT
  Sex: Female
  Weight: 53.52 kg

DRUGS (6)
  1. DURAGESIC-100 [Suspect]
     Route: 062
  2. XANAX [Concomitant]
     Indication: ANXIETY
     Route: 048
  3. NEXIUM [Concomitant]
     Route: 048
  4. LEXAPRO [Concomitant]
     Indication: DEPRESSION
     Route: 048
  5. STRATTERA [Concomitant]
     Route: 048
  6. IBUPROFEN [Concomitant]
     Indication: PAIN
     Route: 048

REACTIONS (2)
  - DERMATITIS CONTACT [None]
  - INTERVERTEBRAL DISC PROTRUSION [None]
